FAERS Safety Report 7406660-5 (Version None)
Quarter: 2011Q2

REPORT INFORMATION
  Report Type: 
  Country: None (occurrence: None)
  Receive Date: 20110411
  Receipt Date: 20110406
  Transmission Date: 20111010
  Serious: Yes (Other)
  Sender: FDA-Public Use
  Company Number: US-BRISTOL-MYERS SQUIBB COMPANY-14840748

PATIENT
  Age: 74 Year
  Sex: Male

DRUGS (5)
  1. METFORMIN HCL [Concomitant]
  2. ONGLYZA [Suspect]
     Indication: TYPE 2 DIABETES MELLITUS
     Route: 048
     Dates: start: 20090909, end: 20091006
  3. PRANDIN [Concomitant]
  4. LISINOPRIL [Suspect]
  5. PRAVASTATIN SODIUM [Concomitant]

REACTIONS (3)
  - SWELLING FACE [None]
  - EYE SWELLING [None]
  - DERMATITIS [None]
